FAERS Safety Report 25411006 (Version 2)
Quarter: 2025Q2

REPORT INFORMATION
  Report Type: Report from Study
  Country: US (occurrence: US)
  Receive Date: 20250609
  Receipt Date: 20250618
  Transmission Date: 20250717
  Serious: No
  Sender: BIOVITRUM
  Company Number: US-BIOVITRUM-2025-US-007912

PATIENT
  Age: 4 Year
  Sex: Female

DRUGS (2)
  1. KINERET [Suspect]
     Active Substance: ANAKINRA
     Indication: Product used for unknown indication
     Route: 058
  2. KINERET [Suspect]
     Active Substance: ANAKINRA
     Route: 058

REACTIONS (2)
  - Laboratory test abnormal [Unknown]
  - Drug ineffective [Unknown]
